FAERS Safety Report 25162854 (Version 2)
Quarter: 2025Q2

REPORT INFORMATION
  Report Type: Spontaneous
  Country: TR (occurrence: TR)
  Receive Date: 20250404
  Receipt Date: 20250410
  Transmission Date: 20250716
  Serious: Yes (Death, Life-Threatening, Other)
  Sender: PFIZER
  Company Number: TR-MLMSERVICE-20250324-PI456832-00140-1

PATIENT
  Age: 15 Year
  Sex: Female

DRUGS (6)
  1. IDARUBICIN HYDROCHLORIDE [Suspect]
     Active Substance: IDARUBICIN HYDROCHLORIDE
     Indication: Chloroma
  2. IDARUBICIN HYDROCHLORIDE [Suspect]
     Active Substance: IDARUBICIN HYDROCHLORIDE
     Indication: Acute promyelocytic leukaemia
  3. ETOPOSIDE [Suspect]
     Active Substance: ETOPOSIDE
     Indication: Chloroma
  4. ETOPOSIDE [Suspect]
     Active Substance: ETOPOSIDE
     Indication: Acute promyelocytic leukaemia
  5. CYTARABINE [Suspect]
     Active Substance: CYTARABINE
     Indication: Chloroma
  6. CYTARABINE [Suspect]
     Active Substance: CYTARABINE
     Indication: Acute promyelocytic leukaemia

REACTIONS (5)
  - Cytopenia [Fatal]
  - Typhoid fever [Fatal]
  - Febrile neutropenia [Fatal]
  - Septic shock [Fatal]
  - Feeding disorder [Unknown]
